FAERS Safety Report 4482283-5 (Version None)
Quarter: 2004Q4

REPORT INFORMATION
  Report Type: 
  Country: None (occurrence: None)
  Receive Date: 20041020
  Receipt Date: 20041001
  Transmission Date: 20050328
  Serious: Yes (Hospitalization)
  Sender: FDA-Public Use
  Company Number: USA041079910

PATIENT
  Age: 18 Year
  Sex: Male

DRUGS (2)
  1. CYMBALTA [Suspect]
     Dosage: 30 MG DAY
  2. PAXIL CR [Concomitant]

REACTIONS (3)
  - ANXIETY [None]
  - NERVOUSNESS [None]
  - PSYCHOTIC DISORDER [None]
